FAERS Safety Report 8953653 (Version 1)
Quarter: 2012Q4

REPORT INFORMATION
  Report Type: 
  Country: None (occurrence: IT)
  Receive Date: 20121206
  Receipt Date: 20121206
  Transmission Date: 20130627
  Serious: Yes (Other)
  Sender: FDA-Public Use
  Company Number: -MYLANLABS-2012S1024380

PATIENT
  Age: 69 Year
  Sex: Male

DRUGS (3)
  1. LEVOFLOXACIN [Suspect]
     Indication: CYSTITIS
     Route: 048
     Dates: start: 20121112, end: 20121112
  2. LIBRADIN [Concomitant]
     Indication: PRODUCT USED FOR UNKNOWN INDICATION
  3. RAMIPRIL [Concomitant]
     Indication: PRODUCT USED FOR UNKNOWN INDICATION

REACTIONS (4)
  - Diarrhoea [Recovered/Resolved]
  - Hyperhidrosis [Recovered/Resolved]
  - Syncope [Recovered/Resolved]
  - Dizziness [Recovered/Resolved]
